FAERS Safety Report 5501433-2 (Version None)
Quarter: 2007Q4

REPORT INFORMATION
  Report Type: 
  Country: None (occurrence: None)
  Receive Date: 20071030
  Receipt Date: 20071022
  Transmission Date: 20080405
  Serious: Yes (Hospitalization, Other)
  Sender: FDA-Public Use
  Company Number: PHEH2006US13888

PATIENT
  Age: 56 Year
  Sex: Female
  Weight: 86.167 kg

DRUGS (5)
  1. ESTRADERM [Suspect]
     Indication: MENOPAUSE
     Dosage: 0.1 MG, UNK
     Route: 062
     Dates: start: 19940101, end: 20000101
  2. VIVELLE-DOT [Suspect]
     Indication: MENOPAUSE
     Dosage: 0.1 MG, UNK
  3. PROVERA [Suspect]
     Indication: MENOPAUSE
     Dosage: 5 MG, UNK
     Dates: start: 19880101, end: 19890101
  4. PROVERA [Suspect]
     Dosage: 5 MG, UNK
     Dates: start: 19940101, end: 20000101
  5. VIVELLE [Suspect]
     Indication: MENOPAUSE
     Dosage: 0.1 MG, UNK
     Dates: start: 19970401

REACTIONS (30)
  - ARTHRITIS [None]
  - ATRIAL FIBRILLATION [None]
  - BACK PAIN [None]
  - BLOOD CHOLESTEROL INCREASED [None]
  - BLOOD TRIGLYCERIDES INCREASED [None]
  - BREAST CANCER [None]
  - BREAST COSMETIC SURGERY [None]
  - BREAST MASS [None]
  - BREAST RECONSTRUCTION [None]
  - CARDIAC FAILURE CONGESTIVE [None]
  - CARDIAC PACEMAKER INSERTION [None]
  - CARDIOMEGALY [None]
  - DIABETES MELLITUS [None]
  - DYSPNOEA [None]
  - GOITRE [None]
  - HAEMATURIA [None]
  - HEPATIC STEATOSIS [None]
  - HYPERTENSION [None]
  - HYPERTHYROIDISM [None]
  - HYPERTONIC BLADDER [None]
  - INDURATION [None]
  - LIVER DISORDER [None]
  - MASTECTOMY [None]
  - OBESITY [None]
  - OESTROGEN RECEPTOR ASSAY POSITIVE [None]
  - POLLAKIURIA [None]
  - PROGESTERONE RECEPTOR ASSAY POSITIVE [None]
  - SICK SINUS SYNDROME [None]
  - STRESS URINARY INCONTINENCE [None]
  - UTERINE DISORDER [None]
